FAERS Safety Report 4330850-1 (Version None)
Quarter: 2004Q1

REPORT INFORMATION
  Report Type: 
  Country: None (occurrence: None)
  Receive Date: 20040331
  Receipt Date: 20040316
  Transmission Date: 20041129
  Serious: Yes (Hospitalization)
  Sender: FDA-Public Use
  Company Number: USA040361454

PATIENT
  Age: 55 Year
  Sex: Male
  Weight: 71 kg

DRUGS (10)
  1. HUMALOG [Suspect]
     Dates: start: 20010101
  2. HUMULIN 70/30 [Suspect]
     Dosage: 33 U DAY
  3. ASPIRIN [Concomitant]
  4. LIPITOR [Concomitant]
  5. COREG [Concomitant]
  6. DIGOXIN [Concomitant]
  7. IMDUR [Concomitant]
  8. ZESTRIL [Concomitant]
  9. COUMADIN [Concomitant]
  10. LASIX [Concomitant]

REACTIONS (3)
  - BLOOD GLUCOSE INCREASED [None]
  - MYOCARDIAL INFARCTION [None]
  - PHARMACEUTICAL PRODUCT COMPLAINT [None]
